FAERS Safety Report 20837985 (Version 1)
Quarter: 2022Q2

REPORT INFORMATION
  Report Type: Spontaneous
  Country: US (occurrence: US)
  Receive Date: 20220517
  Receipt Date: 20220517
  Transmission Date: 20220720
  Serious: No
  Sender: FDA-Public Use
  Company Number: US-ALLERGAN-2133250US

PATIENT
  Sex: Female

DRUGS (1)
  1. KYBELLA [Suspect]
     Active Substance: DEOXYCHOLIC ACID
     Indication: Lipolysis procedure
     Dosage: 2 ML, SINGLE
     Route: 058
     Dates: start: 20210622, end: 20210622

REACTIONS (5)
  - Swelling [Recovering/Resolving]
  - Sinusitis [Not Recovered/Not Resolved]
  - Weight decreased [Unknown]
  - Condition aggravated [Not Recovered/Not Resolved]
  - Malabsorption from injection site [Not Recovered/Not Resolved]

NARRATIVE: CASE EVENT DATE: 20210101
